FAERS Safety Report 7460194-0 (Version None)
Quarter: 2011Q2

REPORT INFORMATION
  Report Type: 
  Country: None (occurrence: None)
  Receive Date: 20110505
  Receipt Date: 20110429
  Transmission Date: 20111010
  Serious: Yes (Hospitalization)
  Sender: FDA-Public Use
  Company Number: US-ALEXION-A201100614

PATIENT
  Sex: Female

DRUGS (1)
  1. SOLIRIS [Suspect]
     Indication: PAROXYSMAL NOCTURNAL HAEMOGLOBINURIA
     Dosage: 900 MG Q2W
     Route: 042

REACTIONS (8)
  - URINARY TRACT INFECTION [None]
  - HYPOTENSION [None]
  - PYREXIA [None]
  - TRANSFUSION REACTION [None]
  - PANCYTOPENIA [None]
  - HAPTOGLOBIN INCREASED [None]
  - BLOOD PRODUCT TRANSFUSION [None]
  - CONDITION AGGRAVATED [None]
